FAERS Safety Report 17476589 (Version 1)
Quarter: 2020Q1

REPORT INFORMATION
  Report Type: Spontaneous
  Country: US (occurrence: US)
  Receive Date: 20200228
  Receipt Date: 20200228
  Transmission Date: 20200409
  Serious: No
  Sender: FDA-Public Use
  Company Number: US-JNJFOC-20200233459

PATIENT
  Sex: Female

DRUGS (1)
  1. WOMENS ROGAINE UNSCENTED [Suspect]
     Active Substance: MINOXIDIL
     Indication: ALOPECIA
     Dosage: AS PRESCRIBE ON THE BOX ONCE DAILY
     Route: 061
     Dates: start: 2020, end: 2020

REACTIONS (1)
  - Application site paraesthesia [Recovered/Resolved]

NARRATIVE: CASE EVENT DATE: 2020
